FAERS Safety Report 25998189 (Version 1)
Quarter: 2025Q4

REPORT INFORMATION
  Report Type: Spontaneous
  Country: US (occurrence: US)
  Receive Date: 20251105
  Receipt Date: 20251105
  Transmission Date: 20260118
  Serious: Yes (Other)
  Sender: CELLTRION
  Company Number: US-CELLTRION INC.-2025US016433

PATIENT

DRUGS (3)
  1. INFLECTRA [Suspect]
     Active Substance: INFLIXIMAB-DYYB
     Indication: Colitis ulcerative
     Dosage: 5 MILLIGRAM SIX VIALS, EVERY 4 WEEKS
  2. LANSOPRAZOLE [Concomitant]
     Active Substance: LANSOPRAZOLE
     Dosage: 30 MILLIGRAM, ^ONE CAPSULE ONE HOUR BEFORE MORNING MEAL, ONCE A DAY^
  3. PREDNISONE [Concomitant]
     Active Substance: PREDNISONE

REACTIONS (6)
  - Erythema [Unknown]
  - Swelling [Unknown]
  - Heart rate increased [Unknown]
  - Chest pain [Unknown]
  - Dyspnoea [Unknown]
  - Intentional product use issue [Unknown]

NARRATIVE: CASE EVENT DATE: 20250522
